FAERS Safety Report 5119264-4 (Version None)
Quarter: 2006Q4

REPORT INFORMATION
  Report Type: 
  Country: None (occurrence: None)
  Receive Date: 20061003
  Receipt Date: 20060904
  Transmission Date: 20070319
  Serious: Yes (Hospitalization)
  Sender: FDA-Public Use
  Company Number: DE-AMGEN-UK191206

PATIENT
  Sex: Male
  Weight: 89 kg

DRUGS (7)
  1. NEULASTA [Suspect]
     Indication: CHEMOTHERAPY
     Route: 058
     Dates: start: 20060815
  2. RITUXIMAB [Concomitant]
     Route: 065
  3. CYCLOPHOSPHAMIDE [Concomitant]
     Route: 065
  4. DOXORUBICIN HYDROCHLORIDE [Concomitant]
     Route: 065
  5. VINCRISTINE [Concomitant]
     Route: 065
  6. PREDNISONE [Concomitant]
     Route: 065
  7. METAMIZOLE [Concomitant]
     Route: 048
     Dates: start: 20060808

REACTIONS (6)
  - DRUG HYPERSENSITIVITY [None]
  - HYPERSENSITIVITY [None]
  - LARYNGOSPASM [None]
  - RASH [None]
  - THROAT TIGHTNESS [None]
  - URTICARIA [None]
